FAERS Safety Report 16037308 (Version 1)
Quarter: 2019Q1

REPORT INFORMATION
  Report Type: Spontaneous
  Country: US (occurrence: US)
  Receive Date: 20190305
  Receipt Date: 20190305
  Transmission Date: 20190418
  Serious: Yes (Disabling)
  Sender: FDA-Public Use
  Company Number: US-ASTRAZENECA-2019SE33344

PATIENT
  Sex: Female
  Weight: 86.2 kg

DRUGS (1)
  1. SYMBICORT [Suspect]
     Active Substance: BUDESONIDE\FORMOTEROL FUMARATE DIHYDRATE
     Dosage: 160/4.5 MCG 2 PUFFS TWICE A DAY TWO TIMES A DAY
     Route: 055
     Dates: start: 2008

REACTIONS (4)
  - Fall [Not Recovered/Not Resolved]
  - Device malfunction [Unknown]
  - Lower limb fracture [Not Recovered/Not Resolved]
  - Weight decreased [Unknown]
